FAERS Safety Report 17729462 (Version 1)
Quarter: 2020Q2

REPORT INFORMATION
  Report Type: Spontaneous
  Country: GB (occurrence: GB)
  Receive Date: 20200430
  Receipt Date: 20200430
  Transmission Date: 20200714
  Serious: Yes (Death, Hospitalization, Other)
  Sender: FDA-Public Use
  Company Number: NVSC2020GB116010

PATIENT
  Age: 67 Year
  Sex: Male

DRUGS (2)
  1. DOCETAXEL. [Suspect]
     Active Substance: DOCETAXEL
     Dosage: UNK UNK, CYCLIC (QCY)
     Route: 065
     Dates: start: 20190109, end: 20190109
  2. DOCETAXEL. [Suspect]
     Active Substance: DOCETAXEL
     Indication: PROSTATE CANCER METASTATIC
     Dosage: UNK UNK, CYCLIC (QCY)
     Route: 065
     Dates: start: 20180509, end: 20180509

REACTIONS (1)
  - Hydronephrosis [Fatal]

NARRATIVE: CASE EVENT DATE: 20180801
